FAERS Safety Report 11086522 (Version 1)
Quarter: 2015Q2

REPORT INFORMATION
  Report Type: Spontaneous
  Country: US (occurrence: US)
  Receive Date: 20150504
  Receipt Date: 20150504
  Transmission Date: 20150821
  Serious: No
  Sender: FDA-Public Use
  Company Number: US-TEVA-535399USA

PATIENT
  Age: 80 Year
  Sex: Female

DRUGS (1)
  1. ZOLPIDEM [Suspect]
     Active Substance: ZOLPIDEM\ZOLPIDEM TARTRATE
     Indication: INSOMNIA
     Dosage: TAKES HALF OF 5 MG TABLET THEN TAKES OTHER HALF 4 HOURS LATER
     Dates: start: 20141205

REACTIONS (9)
  - Intentional product misuse [Unknown]
  - Incorrect dose administered [Unknown]
  - Drug effect variable [Unknown]
  - Anxiety [Unknown]
  - Drug ineffective [Unknown]
  - Insomnia [Unknown]
  - Panic reaction [Unknown]
  - Nasopharyngitis [Unknown]
  - Drug interaction [Unknown]

NARRATIVE: CASE EVENT DATE: 201501
